FAERS Safety Report 10272502 (Version 1)
Quarter: 2014Q2

REPORT INFORMATION
  Report Type: Spontaneous
  Country: TR (occurrence: None)
  Receive Date: 20140630
  Receipt Date: 20140630
  Transmission Date: 20141212
  Serious: Yes (Death, Hospitalization, Congenital Anomaly, Other)
  Sender: FDA-Public Use
  Company Number: 2014AP003465

PATIENT
  Sex: Male
  Weight: 2.4 kg

DRUGS (1)
  1. PAROXETINE (PAROXETINE) UNKNOWN [Suspect]
     Indication: PRODUCT USED FOR UNKNOWN INDICATION
     Route: 064

REACTIONS (9)
  - Pulmonary artery atresia [None]
  - Persistent left superior vena cava [None]
  - Cardiac arrest neonatal [None]
  - Atrial septal defect [None]
  - Ventricular septal defect [None]
  - Foetal exposure during pregnancy [None]
  - Multiple congenital abnormalities [None]
  - Deafness [None]
  - Anomaly of external ear congenital [None]
